FAERS Safety Report 4351014-1 (Version None)
Quarter: 2004Q2

REPORT INFORMATION
  Report Type: 
  Country: None (occurrence: None)
  Receive Date: 20040427
  Receipt Date: 20040414
  Transmission Date: 20050107
  Serious: Yes (Hospitalization)
  Sender: FDA-Public Use
  Company Number: 2004025148

PATIENT
  Age: 78 Year
  Sex: Female

DRUGS (6)
  1. ATARAX [Suspect]
     Indication: ILL-DEFINED DISORDER
     Dates: end: 20040309
  2. PRISTINAMYCIN (PRISTINAMYCIN) [Concomitant]
     Indication: ERYSIPELAS
     Dates: start: 20040302, end: 20040308
  3. FLUIDIONE (FLUIDIONE) [Concomitant]
  4. MODURETIC ^MSD^ (AMILORIDE HYDROCHLORIDE) [Concomitant]
  5. DESLORATADINE (DESLORATADINE) [Concomitant]
  6. FUROSEMIDE [Concomitant]

REACTIONS (3)
  - ERYSIPELAS [None]
  - EXANTHEM [None]
  - PRURITUS [None]
